FAERS Safety Report 10018649 (Version 2)
Quarter: 2014Q3

REPORT INFORMATION
  Report Type: Report from Study
  Country: US (occurrence: US)
  Receive Date: 20140318
  Receipt Date: 20140929
  Transmission Date: 20150326
  Serious: Yes (Other)
  Sender: FDA-Public Use
  Company Number: US-SA-2014SA031256

PATIENT
  Age: 47 Year
  Sex: Female

DRUGS (1)
  1. AUBAGIO [Suspect]
     Active Substance: TERIFLUNOMIDE
     Indication: MULTIPLE SCLEROSIS
     Route: 048
     Dates: start: 20121204

REACTIONS (2)
  - Product packaging issue [Unknown]
  - Gait disturbance [Not Recovered/Not Resolved]
